FAERS Safety Report 22536152 (Version 5)
Quarter: 2024Q3

REPORT INFORMATION
  Report Type: Spontaneous
  Country: US (occurrence: US)
  Receive Date: 20230608
  Receipt Date: 20240724
  Transmission Date: 20241016
  Serious: Yes (Hospitalization, Other)
  Sender: GLAXOSMITHKLINE
  Company Number: US-GSKCCFUS-Case-01718960_AE-96918

PATIENT

DRUGS (6)
  1. BENLYSTA [Suspect]
     Active Substance: BELIMUMAB
     Indication: Undifferentiated connective tissue disease
     Dosage: 200 MG, WE
     Route: 058
  2. BENLYSTA [Suspect]
     Active Substance: BELIMUMAB
     Indication: Autoinflammatory disease
  3. BENLYSTA [Suspect]
     Active Substance: BELIMUMAB
     Indication: Connective tissue disorder
     Dosage: 200 MG/ML, WE
     Route: 058
  4. BENLYSTA [Suspect]
     Active Substance: BELIMUMAB
     Indication: Haemophagocytic lymphohistiocytosis
  5. OLUMIANT [Suspect]
     Active Substance: BARICITINIB
     Indication: Autoinflammatory disease
     Dosage: UNK
  6. OLUMIANT [Suspect]
     Active Substance: BARICITINIB
     Indication: Undifferentiated connective tissue disease

REACTIONS (9)
  - Hospitalisation [Unknown]
  - Infection [Recovering/Resolving]
  - Intestinal obstruction [Recovering/Resolving]
  - Neutropenia [Unknown]
  - Dehydration [Unknown]
  - Urticaria [Recovered/Resolved]
  - Pain in extremity [Recovered/Resolved]
  - Product use in unapproved indication [Unknown]
  - Drug ineffective [Unknown]

NARRATIVE: CASE EVENT DATE: 20230401
